FAERS Safety Report 18497509 (Version 1)
Quarter: 2020Q4

REPORT INFORMATION
  Report Type: Spontaneous
  Country: SA (occurrence: SA)
  Receive Date: 20201112
  Receipt Date: 20201112
  Transmission Date: 20210114
  Serious: Yes (Hospitalization)
  Sender: FDA-Public Use
  Company Number: SA-LUPIN PHARMACEUTICALS INC.-2020-07309

PATIENT
  Age: 56 Year
  Sex: Male

DRUGS (15)
  1. TIGECYCLINE. [Suspect]
     Active Substance: TIGECYCLINE
     Indication: CNS VENTRICULITIS
     Dosage: 100 MILLIGRAM, BID
     Route: 042
  2. VANCOMYCIN [Concomitant]
     Active Substance: VANCOMYCIN
     Indication: EVIDENCE BASED TREATMENT
     Dosage: 1 GRAM, BID
     Route: 042
  3. COLISTIN [Concomitant]
     Active Substance: COLISTIN
     Indication: ACINETOBACTER INFECTION
     Dosage: UNK-DOSE: 9 MILLION UNITS; STAT DOSE
     Route: 042
  4. LEVETIRACETAM. [Concomitant]
     Active Substance: LEVETIRACETAM
     Indication: MYOCLONIC EPILEPSY
     Dosage: 500 MILLIGRAM, BID
     Route: 065
  5. SULFAMETHOXAZOLE AND TRIMETHOPRIM [Suspect]
     Active Substance: SULFAMETHOXAZOLE\TRIMETHOPRIM
     Indication: ACINETOBACTER INFECTION
     Dosage: 1920 MILLIGRAM, QID
     Route: 042
  6. MEROPENEM. [Suspect]
     Active Substance: MEROPENEM
     Indication: CNS VENTRICULITIS
  7. TIGECYCLINE. [Suspect]
     Active Substance: TIGECYCLINE
     Indication: ACINETOBACTER INFECTION
     Dosage: 200 MILLIGRAM-HIGH DOSE; STAT DOSE
     Route: 042
  8. PHENYTOIN. [Concomitant]
     Active Substance: PHENYTOIN
     Dosage: 100 MILLIGRAM-MAINTENANCE DOSE
     Route: 065
  9. SULFAMETHOXAZOLE AND TRIMETHOPRIM [Suspect]
     Active Substance: SULFAMETHOXAZOLE\TRIMETHOPRIM
     Indication: CNS VENTRICULITIS
  10. TIGECYCLINE. [Suspect]
     Active Substance: TIGECYCLINE
     Dosage: 2 MILLIGRAM, BID
  11. COLISTIN [Concomitant]
     Active Substance: COLISTIN
     Indication: CNS VENTRICULITIS
     Dosage: UNK-DOSE: 3 MILLION UNITS EVERY 8 HOURS
     Route: 042
  12. MIDAZOLAM. [Concomitant]
     Active Substance: MIDAZOLAM
     Indication: MYOCLONIC EPILEPSY
     Dosage: 5 MILLIGRAM
     Route: 042
  13. PHENYTOIN. [Concomitant]
     Active Substance: PHENYTOIN
     Indication: MYOCLONIC EPILEPSY
     Dosage: 1.5 GRAM, BID
     Route: 042
  14. MEROPENEM. [Suspect]
     Active Substance: MEROPENEM
     Indication: ACINETOBACTER INFECTION
     Dosage: 2 GRAM, TID
     Route: 042
  15. TIGECYCLINE. [Suspect]
     Active Substance: TIGECYCLINE
     Dosage: 4 MILLIGRAM, BID

REACTIONS (1)
  - Drug ineffective [Unknown]
